FAERS Safety Report 8831263 (Version 1)
Quarter: 2012Q4

REPORT INFORMATION
  Report Type: 
  Country: US (occurrence: US)
  Receive Date: 20121008
  Receipt Date: 20121008
  Transmission Date: 20130627
  Serious: No
  Sender: FDA-Public Use
  Company Number: US-VERTEX PHARMACEUTICAL INC.-2012-021425

PATIENT
  Age: 29 Year
  Sex: Male

DRUGS (3)
  1. INCIVEK [Suspect]
     Indication: HEPATITIS C
     Dosage: 2 pills 7-9h
     Route: 048
     Dates: start: 20120721
  2. RIBAVIRIN [Suspect]
     Indication: HEPATITIS C
     Dosage: UNK, bid
     Route: 048
     Dates: start: 20120721
  3. PEGINTERFERON ALFA [Suspect]
     Indication: HEPATITIS C
     Dosage: weekly
     Route: 058
     Dates: start: 20120721

REACTIONS (2)
  - Jaw disorder [Not Recovered/Not Resolved]
  - Pain in jaw [Not Recovered/Not Resolved]
